FAERS Safety Report 6057896-X (Version None)
Quarter: 2009Q1

REPORT INFORMATION
  Report Type: 
  Country: None (occurrence: None)
  Receive Date: 20090126
  Receipt Date: 20090112
  Transmission Date: 20090719
  Serious: Yes (Death, Hospitalization)
  Sender: FDA-Public Use
  Company Number: KV200900075

PATIENT
  Age: 77 Year
  Sex: Female
  Weight: 40.8 kg

DRUGS (4)
  1. HYDROMORPHONE HYDROCHLORIDE (HYDROMORPHINE HYDROCHLORIDE) [Suspect]
     Indication: BACK PAIN
     Dosage: 2 MG, BID, ORAL
     Route: 048
     Dates: start: 20080101, end: 20081001
  2. ANTIHYPERTENSIVES [Concomitant]
  3. LYRICA [Concomitant]
  4. XANAX [Concomitant]

REACTIONS (7)
  - BLOOD PRESSURE DECREASED [None]
  - BLOOD PRESSURE INCREASED [None]
  - DYSPNOEA [None]
  - PNEUMONIA [None]
  - PRODUCT QUALITY ISSUE [None]
  - TREMOR [None]
  - UNRESPONSIVE TO STIMULI [None]
